FAERS Safety Report 22847283 (Version 3)
Quarter: 2023Q4

REPORT INFORMATION
  Report Type: Report from Study
  Country: KR (occurrence: KR)
  Receive Date: 20230822
  Receipt Date: 20231013
  Transmission Date: 20240109
  Serious: Yes (Hospitalization, Other)
  Sender: FDA-Public Use
  Company Number: KR-CELLTRION INC.-2023KR016414

PATIENT

DRUGS (4)
  1. HERZUMA [Suspect]
     Active Substance: TRASTUZUMAB-PKRB
     Indication: Breast cancer
     Dosage: UNK
     Route: 042
     Dates: start: 20230614, end: 20230915
  2. URSODIOL [Concomitant]
     Active Substance: URSODIOL
     Indication: Prophylaxis
     Dosage: 100 MG, TID
     Route: 048
     Dates: start: 20230819
  3. K-CONTIN CONTINUS [Concomitant]
     Indication: Supplementation therapy
     Dosage: 600 MG, TID
     Route: 048
     Dates: start: 20230819, end: 20230820
  4. FOTAGEL [Concomitant]
     Indication: Diarrhoea
     Dosage: 20 ML, QD
     Dates: start: 20230820, end: 20230822

REACTIONS (2)
  - Pyelonephritis acute [Not Recovered/Not Resolved]
  - Cholecystitis acute [Recovered/Resolved]

NARRATIVE: CASE EVENT DATE: 20230815
